FAERS Safety Report 4449720-3 (Version None)
Quarter: 2004Q3

REPORT INFORMATION
  Report Type: 
  Country: None (occurrence: None)
  Receive Date: 20040913
  Receipt Date: 20040913
  Transmission Date: 20050211
  Serious: Yes (Disabling)
  Sender: FDA-Public Use
  Company Number: None

PATIENT
  Sex: Female
  Weight: 73.9363 kg

DRUGS (1)
  1. SEROQUEL [Suspect]
     Indication: SLEEP DISORDER
     Dosage: I TOOK 1 25 MG TAB DAILY BY MOUTH
     Dates: start: 20030601, end: 20030830

REACTIONS (2)
  - DRUG INEFFECTIVE [None]
  - TARDIVE DYSKINESIA [None]
